FAERS Safety Report 5494583-0 (Version None)
Quarter: 2007Q4

REPORT INFORMATION
  Report Type: 
  Country: None (occurrence: None)
  Receive Date: 20071024
  Receipt Date: 20071013
  Transmission Date: 20080405
  Serious: Yes (Hospitalization, Other)
  Sender: FDA-Public Use
  Company Number: CA-ELI_LILLY_AND_COMPANY-CA200710003840

PATIENT
  Age: 64 Year
  Sex: Female

DRUGS (10)
  1. FORTEO [Suspect]
     Indication: OSTEOPOROSIS
     Dosage: 20 UG, DAILY (1/D)
     Route: 058
     Dates: start: 20070905
  2. OXYCONTIN [Concomitant]
  3. TYLENOL W/ CODEINE NO. 3 [Concomitant]
  4. AZATHIOPRINE [Concomitant]
  5. GABAPENTIN [Concomitant]
  6. LORAZEPAM [Concomitant]
  7. CITALOPRAM HYDROBROMIDE [Concomitant]
  8. PREDNISONE [Concomitant]
  9. CALCIUM [Concomitant]
  10. MULTIVITAMINS, COMBINATIONS [Concomitant]

REACTIONS (2)
  - MASS [None]
  - NEOPLASM MALIGNANT [None]
